FAERS Safety Report 7890193-6 (Version None)
Quarter: 2011Q4

REPORT INFORMATION
  Report Type: 
  Country: None (occurrence: None)
  Receive Date: 20111103
  Receipt Date: 20110725
  Transmission Date: 20120403
  Serious: No
  Sender: FDA-Public Use
  Company Number: US-AMGEN-USASP2011022865

PATIENT
  Age: 38 Year
  Sex: Female

DRUGS (2)
  1. ENBREL [Suspect]
     Indication: PSORIATIC ARTHROPATHY
  2. ENBREL [Suspect]
     Indication: PSORIASIS
     Dosage: 50 MG, QWK
     Route: 058
     Dates: start: 20101014, end: 20110429

REACTIONS (11)
  - ARTHRALGIA [None]
  - CONSTIPATION [None]
  - PSORIASIS [None]
  - VULVAL ABSCESS [None]
  - HEADACHE [None]
  - STAPHYLOCOCCAL INFECTION [None]
  - EYE PAIN [None]
  - RHINORRHOEA [None]
  - MALAISE [None]
  - ANXIETY [None]
  - PAIN [None]
